FAERS Safety Report 8876189 (Version 1)
Quarter: 2012Q4

REPORT INFORMATION
  Report Type: 
  Country: RU (occurrence: RU)
  Receive Date: 20121023
  Receipt Date: 20121023
  Transmission Date: 20130627
  Serious: Yes (Hospitalization)
  Sender: FDA-Public Use
  Company Number: RU-ABBOTT-12P-251-0997019-00

PATIENT
  Age: 28 Year
  Sex: Female

DRUGS (2)
  1. KLACID [Suspect]
     Indication: BRONCHITIS
     Dosage: 500 mg/day
     Route: 048
     Dates: start: 201210, end: 201210
  2. LASOLVAN [Concomitant]
     Indication: COUGH
     Route: 048
     Dates: start: 201210, end: 201210

REACTIONS (2)
  - Myositis [Recovering/Resolving]
  - Abdominal pain upper [Recovering/Resolving]
